FAERS Safety Report 10062320 (Version 2)
Quarter: 2014Q3

REPORT INFORMATION
  Report Type: Spontaneous
  Country: US (occurrence: US)
  Receive Date: 20140407
  Receipt Date: 20140801
  Transmission Date: 20150326
  Serious: Yes (Other)
  Sender: FDA-Public Use
  Company Number: US-GLAXOSMITHKLINE-A1059062A

PATIENT
  Age: 49 Year
  Sex: Female

DRUGS (8)
  1. LASIX [Concomitant]
     Active Substance: FUROSEMIDE
  2. CARDIZEM [Concomitant]
     Active Substance: DILTIAZEM HYDROCHLORIDE
  3. BENLYSTA [Suspect]
     Active Substance: BELIMUMAB
     Indication: SYSTEMIC LUPUS ERYTHEMATOSUS
     Route: 065
     Dates: start: 201107
  4. ALDACTONE [Concomitant]
     Active Substance: SPIRONOLACTONE
  5. PREDNISONE. [Concomitant]
     Active Substance: PREDNISONE
  6. PLAQUENIL [Concomitant]
     Active Substance: HYDROXYCHLOROQUINE SULFATE
  7. VITAMINS [Concomitant]
     Active Substance: VITAMINS
  8. LUNESTA [Concomitant]
     Active Substance: ESZOPICLONE

REACTIONS (16)
  - Pancreatitis [Recovering/Resolving]
  - Swelling [Recovering/Resolving]
  - Pancreatic mass [Recovering/Resolving]
  - Omental infarction [Recovering/Resolving]
  - Blood potassium decreased [Unknown]
  - Gastric polyps [Recovering/Resolving]
  - Large intestine polyp [Recovering/Resolving]
  - Pancreatic operation [Unknown]
  - Dyspnoea [Recovering/Resolving]
  - Gastritis [Recovering/Resolving]
  - Gastroparesis postoperative [Unknown]
  - Spleen operation [Unknown]
  - Malaise [Unknown]
  - Chest discomfort [Recovering/Resolving]
  - Fluid retention [Recovering/Resolving]
  - Pain [Recovering/Resolving]

NARRATIVE: CASE EVENT DATE: 201302
